FAERS Safety Report 20917254 (Version 9)
Quarter: 2022Q4

REPORT INFORMATION
  Report Type: Spontaneous
  Country: CA (occurrence: CA)
  Receive Date: 20220606
  Receipt Date: 20221219
  Transmission Date: 20230112
  Serious: Yes (Other)
  Sender: FDA-Public Use
  Company Number: CA-CELLTRION INC.-2022CA008617

PATIENT

DRUGS (17)
  1. INFLECTRA [Suspect]
     Active Substance: INFLIXIMAB-DYYB
     Indication: Colitis ulcerative
     Dosage: 5 MG/KG, Q 0 WEEK DOSE
     Route: 042
     Dates: start: 20190117, end: 20190117
  2. INFLECTRA [Suspect]
     Active Substance: INFLIXIMAB-DYYB
     Dosage: 5 MG/KG, Q 2 WEEK DOSE
     Route: 042
     Dates: start: 20190130, end: 20190130
  3. INFLECTRA [Suspect]
     Active Substance: INFLIXIMAB-DYYB
     Dosage: 5 MG/KG, Q 6 WEEK DOSE
     Route: 042
     Dates: start: 20190301, end: 20190301
  4. INFLECTRA [Suspect]
     Active Substance: INFLIXIMAB-DYYB
     Dosage: 5 MG/KG, EVERY 8 WEEK
     Route: 042
     Dates: start: 20190426, end: 20210111
  5. INFLECTRA [Suspect]
     Active Substance: INFLIXIMAB-DYYB
     Dosage: 5 MG/KG, EVERY 4 WEEK
     Route: 042
     Dates: start: 20210119
  6. INFLECTRA [Suspect]
     Active Substance: INFLIXIMAB-DYYB
     Dosage: 5 MG/KG, EVERY 4 WEEK
     Route: 042
     Dates: start: 20220330
  7. INFLECTRA [Suspect]
     Active Substance: INFLIXIMAB-DYYB
     Dosage: 5 MG/KG, EVERY 4 WEEK
     Route: 042
     Dates: start: 20220610
  8. INFLECTRA [Suspect]
     Active Substance: INFLIXIMAB-DYYB
     Dosage: 5 MG/KG, EVERY 4 WEEK
     Route: 042
     Dates: start: 20220610
  9. INFLECTRA [Suspect]
     Active Substance: INFLIXIMAB-DYYB
     Dosage: 5 MG/KG, EVERY 4 WEEK
     Route: 042
     Dates: start: 20220610
  10. INFLECTRA [Suspect]
     Active Substance: INFLIXIMAB-DYYB
     Dosage: 5 MG/KG, EVERY 4 WEEK
     Route: 042
     Dates: start: 20220610
  11. INFLECTRA [Suspect]
     Active Substance: INFLIXIMAB-DYYB
     Dosage: 5 MG/KG, EVERY 4 WEEK
     Route: 042
     Dates: start: 20220720
  12. INFLECTRA [Suspect]
     Active Substance: INFLIXIMAB-DYYB
     Dosage: 5 MG/KG, EVERY 4 WEEK
     Route: 042
     Dates: start: 20221012
  13. INFLECTRA [Suspect]
     Active Substance: INFLIXIMAB-DYYB
     Dosage: 5 MG/KG, EVERY 4 WEEK
     Route: 042
     Dates: start: 20221208
  14. MESALAMINE [Concomitant]
     Active Substance: MESALAMINE
     Dosage: 1 DF, DOSING INFORMATION FOR MEZAVANT UNKNOWN
     Route: 065
     Dates: start: 2015
  15. MESALAMINE [Concomitant]
     Active Substance: MESALAMINE
     Dosage: UNK
  16. PREDNISONE [Concomitant]
     Active Substance: PREDNISONE
     Dosage: 40 MG, UNKNOWN IF ONGOING OR DISCONTINUED
     Route: 065
     Dates: start: 20201230
  17. VALGANCICLOVIR [Concomitant]
     Active Substance: VALGANCICLOVIR
     Dosage: 900 MG
     Route: 065

REACTIONS (6)
  - Omphalitis [Not Recovered/Not Resolved]
  - Inappropriate schedule of product administration [Unknown]
  - Off label use [Unknown]
  - Intentional product misuse [Unknown]
  - Erythema [Unknown]
  - Discharge [Unknown]

NARRATIVE: CASE EVENT DATE: 20220101
